FAERS Safety Report 9929488 (Version 1)
Quarter: 2014Q1

REPORT INFORMATION
  Report Type: Spontaneous
  Country: JP (occurrence: JP)
  Receive Date: 20140227
  Receipt Date: 20140227
  Transmission Date: 20141002
  Serious: Yes (Death, Other)
  Sender: FDA-Public Use
  Company Number: PHHY2014JP019780

PATIENT
  Age: 64 Year
  Sex: Female

DRUGS (2)
  1. HEPARIN [Suspect]
     Indication: PROPHYLAXIS
     Dosage: 10000 U, DAILY
     Route: 042
  2. ALTEPLASE [Suspect]
     Dosage: 0.6 MG/KG, UNK
     Route: 042

REACTIONS (12)
  - Cardio-respiratory arrest [Fatal]
  - Embolism [Fatal]
  - Shock [Unknown]
  - Coma [Unknown]
  - Hemiplegia [Unknown]
  - Carotid artery occlusion [Unknown]
  - Renal artery occlusion [Unknown]
  - Intracardiac thrombus [Unknown]
  - Renal injury [Unknown]
  - Renal infarct [Unknown]
  - Splenic infarction [Unknown]
  - Intestinal ischaemia [Unknown]
